FAERS Safety Report 9661730 (Version 2)
Quarter: 2013Q4

REPORT INFORMATION
  Report Type: Spontaneous
  Country: CA (occurrence: None)
  Receive Date: 20131030
  Receipt Date: 20131118
  Transmission Date: 20140711
  Serious: Yes (Other)
  Sender: FDA-Public Use
  Company Number: VAL_02788_2013

PATIENT
  Age: 59 Year
  Sex: Male

DRUGS (2)
  1. METOPROLOL (METOPROLOL-METOPROLOL TARTRATE) [Suspect]
     Indication: ATRIAL FIBRILLATION
     Route: 042
  2. WARFARIN (WARFARIN) [Suspect]
     Indication: ANTICOAGULANT THERAPY
     Dosage: (DF)

REACTIONS (3)
  - Cerebrovascular accident [None]
  - International normalised ratio increased [None]
  - Thalamus haemorrhage [None]
